FAERS Safety Report 4790361-6 (Version None)
Quarter: 2005Q4

REPORT INFORMATION
  Report Type: 
  Country: None (occurrence: None)
  Receive Date: 20051005
  Receipt Date: 20051005
  Transmission Date: 20060501
  Serious: Yes (Life-Threatening, Hospitalization)
  Sender: FDA-Public Use
  Company Number: None

PATIENT
  Age: 53 Year
  Sex: Male
  Weight: 55 kg

DRUGS (7)
  1. LOVASTATIN [Suspect]
     Indication: CORONARY ARTERY DISEASE
     Dosage: 40MG PO QD
     Route: 048
  2. NIASPAN [Concomitant]
  3. LASIX [Concomitant]
  4. HYDRALAZINE [Concomitant]
  5. ELANAPRIL [Concomitant]
  6. CLONIDINE [Concomitant]
  7. ASPIRIN [Concomitant]

REACTIONS (3)
  - ARTHRALGIA [None]
  - BLOOD CREATINE PHOSPHOKINASE INCREASED [None]
  - MYALGIA [None]
